FAERS Safety Report 16777037 (Version 4)
Quarter: 2020Q1

REPORT INFORMATION
  Report Type: Spontaneous
  Country: DE (occurrence: DE)
  Receive Date: 20190905
  Receipt Date: 20200128
  Transmission Date: 20200409
  Serious: Yes (Hospitalization)
  Sender: FDA-Public Use
  Company Number: DE-CELGENEUS-DEU-20190900158

PATIENT
  Age: 56 Year
  Sex: Male
  Weight: 86.7 kg

DRUGS (18)
  1. VENETOCLAX. [Concomitant]
     Active Substance: VENETOCLAX
     Indication: MYELODYSPLASTIC SYNDROME
     Dosage: 400 MILLIGRAM
     Route: 048
     Dates: start: 20181119, end: 20191006
  2. VITAMIN B12 [Concomitant]
     Active Substance: CYANOCOBALAMIN
     Indication: PROPHYLAXIS
     Dosage: 100 MILLIGRAM
     Route: 048
     Dates: start: 2017
  3. TAVEGIL GEL [Concomitant]
     Indication: ABDOMINAL DISTENSION
     Route: 061
     Dates: start: 20181127
  4. NOVALGIN [Concomitant]
     Indication: MUSCULOSKELETAL PAIN
     Dosage: 30 PERCENT
     Route: 003
     Dates: start: 20190117
  5. SIMVASTATIN. [Concomitant]
     Active Substance: SIMVASTATIN
     Indication: CORONARY ARTERY DISEASE
     Dosage: 40 MILLIGRAM
     Route: 048
     Dates: start: 2011
  6. AZACITIDINE. [Suspect]
     Active Substance: AZACITIDINE
     Indication: MYELODYSPLASTIC SYNDROME
     Dosage: 75 MILLIGRAM/SQ. METER
     Route: 058
     Dates: start: 20181119, end: 20190402
  7. RAMIPRIL. [Concomitant]
     Active Substance: RAMIPRIL
     Indication: OSTEOARTHRITIS
  8. PROPOLIS [Concomitant]
     Active Substance: PROPOLIS WAX
     Indication: ABDOMINAL DISTENSION
     Dosage: 3 MILLIGRAM
     Route: 061
     Dates: start: 20181119
  9. AZACITIDINE. [Suspect]
     Active Substance: AZACITIDINE
     Dosage: 50 MILLIGRAM/SQ. METER
     Route: 041
     Dates: start: 20190923, end: 20191001
  10. PANTOPRAZOLE [Concomitant]
     Active Substance: PANTOPRAZOLE
     Indication: ABDOMINAL PAIN UPPER
  11. IBUPROFEN. [Concomitant]
     Active Substance: IBUPROFEN
     Indication: MUSCULOSKELETAL PAIN
     Dosage: 1600 MILLIGRAM
     Route: 048
     Dates: start: 20190121
  12. ASPIRIN. [Concomitant]
     Active Substance: ASPIRIN
     Indication: PROPHYLAXIS
     Route: 065
     Dates: start: 2011
  13. ZOFRAN [Concomitant]
     Active Substance: ONDANSETRON HYDROCHLORIDE
     Indication: PROPHYLAXIS OF NAUSEA AND VOMITING
     Dosage: 4 MILLIGRAM
     Route: 060
     Dates: start: 20181119, end: 20191001
  14. PANTOPRAZOLE [Concomitant]
     Active Substance: PANTOPRAZOLE
     Indication: GASTROOESOPHAGEAL REFLUX DISEASE
     Dosage: 80 MILLIGRAM
     Route: 048
     Dates: start: 20181203
  15. VITAMIN B6 [Concomitant]
     Active Substance: PYRIDOXINE HYDROCHLORIDE
     Indication: PROPHYLAXIS
     Dosage: 600 MILLIGRAM
     Route: 048
     Dates: start: 20181116
  16. AZACITIDINE. [Suspect]
     Active Substance: AZACITIDINE
     Dosage: 75 MILLIGRAM/SQ. METER
     Route: 041
     Dates: start: 20190423, end: 20190903
  17. NOVALGIN [Concomitant]
     Indication: OSTEOARTHRITIS
  18. RAMIPRIL. [Concomitant]
     Active Substance: RAMIPRIL
     Indication: CORONARY ARTERY DISEASE
     Dosage: 2.5 MILLIGRAM
     Route: 048
     Dates: start: 2011

REACTIONS (1)
  - Interstitial lung disease [Recovered/Resolved]

NARRATIVE: CASE EVENT DATE: 20190807
